FAERS Safety Report 8866251 (Version 2)
Quarter: 2013Q2

REPORT INFORMATION
  Report Type: Report from Study
  Country: JP (occurrence: JP)
  Receive Date: 20121025
  Receipt Date: 20130606
  Transmission Date: 20140414
  Serious: Yes (Hospitalization)
  Sender: FDA-Public Use
  Company Number: JP-JNJFOC-20121012160

PATIENT
  Age: 81 Year
  Sex: Female
  Weight: 38 kg

DRUGS (15)
  1. SIMPONI [Suspect]
     Indication: RHEUMATOID ARTHRITIS
     Route: 058
     Dates: start: 20120724
  2. MIZORIBINE [Suspect]
     Indication: RHEUMATOID ARTHRITIS
     Route: 048
  3. PREDNISOLONE [Suspect]
     Indication: RHEUMATOID ARTHRITIS
     Route: 048
  4. ASPIRIN [Concomitant]
     Indication: MYOCARDIAL INFARCTION
     Route: 048
  5. REBAMIPIDE [Concomitant]
     Indication: PROPHYLAXIS
     Route: 048
  6. ONEALFA [Concomitant]
     Indication: MYOCARDIAL INFARCTION
     Route: 048
  7. CLOPIDOGREL [Concomitant]
     Route: 048
  8. CANDESARTAN [Concomitant]
     Indication: HYPERTENSION
     Route: 048
  9. ALLOPURINOL [Concomitant]
     Indication: HYPERTENSION
     Route: 048
  10. FOLIC ACID [Concomitant]
     Indication: PROPHYLAXIS
     Route: 048
  11. PRAVASTATIN [Concomitant]
     Indication: DYSLIPIDAEMIA
     Route: 048
  12. LANZOPRAZOLE [Concomitant]
     Indication: PROPHYLAXIS
  13. MONTELUKAST [Concomitant]
     Indication: RHINITIS ALLERGIC
     Route: 048
  14. LEVOCETIRIZINE [Concomitant]
     Indication: RHINITIS ALLERGIC
     Route: 048
  15. EPOETIN BETA [Concomitant]
     Indication: NEPHROGENIC ANAEMIA
     Route: 042

REACTIONS (1)
  - Sepsis [Recovered/Resolved]
